FAERS Safety Report 14789363 (Version 8)
Quarter: 2022Q1

REPORT INFORMATION
  Report Type: Spontaneous
  Country: ES (occurrence: ES)
  Receive Date: 20180423
  Receipt Date: 20220122
  Transmission Date: 20220423
  Serious: Yes (Hospitalization, Other)
  Sender: FDA-Public Use
  Company Number: None

PATIENT
  Age: 87 Year
  Sex: Male
  Weight: 87 kg

DRUGS (30)
  1. ALLOPURINOL [Suspect]
     Active Substance: ALLOPURINOL
     Indication: Hyperuricaemia
     Dosage: UNSPECIFIED, ON ALLOPURINOL FOR 6 YEARS,
     Route: 065
     Dates: start: 20110101
  2. CEFTRIAXONE [Suspect]
     Active Substance: CEFTRIAXONE
     Indication: Product used for unknown indication
     Dosage: DOSAGE FORM: UNSPECIFIED, ON ALLOPURINOL FOR 6 YEARS
     Route: 030
     Dates: start: 20170801, end: 20170812
  3. ACYCLOVIR [Suspect]
     Active Substance: ACYCLOVIR
     Indication: Erythrodermic psoriasis
     Dosage: DOSAGE FORM: UNSPECIFIED, ALSO SUBCUTANEOUS 45 MG, ALSO 1200 MG
     Route: 042
     Dates: start: 20170810
  4. NEOTIGASON [Suspect]
     Active Substance: ACITRETIN
     Indication: Erythrodermic psoriasis
     Dosage: DOSAGE FORM: UNSPECIFIED, ALSO RECEIVED 50 MG,
     Dates: start: 20170728, end: 20170728
  5. METAMIZOLE SODIUM [Suspect]
     Active Substance: METAMIZOLE SODIUM
     Indication: Product used for unknown indication
     Dosage: DOSAGE FORM: UNSPECIFIED, ALSO RECEIVED WITH 1 DAY INTERVAL  FROM 01-AUG-2017
     Route: 042
     Dates: start: 201708
  6. STELARA [Suspect]
     Active Substance: USTEKINUMAB
     Indication: Erythrodermic psoriasis
     Route: 058
     Dates: start: 20170803, end: 20170803
  7. FLUCONAZOLE [Suspect]
     Active Substance: FLUCONAZOLE
     Indication: Product used for unknown indication
     Dosage: DOSAGE FORM: UNSPECIFIED, ON ALLOPURINOL FOR 6 YEARS
     Route: 042
     Dates: start: 20170810
  8. ALDACTONE [Concomitant]
     Active Substance: SPIRONOLACTONE
     Route: 065
     Dates: end: 20170802
  9. TAMSULOSIN HYDROCHLORIDE [Concomitant]
     Active Substance: TAMSULOSIN HYDROCHLORIDE
  10. LANSOPRAZOLE [Concomitant]
     Active Substance: LANSOPRAZOLE
     Dates: start: 20170401
  11. BETAMETHASONE\CALCIPOTRIENE [Concomitant]
     Active Substance: BETAMETHASONE\CALCIPOTRIENE
     Dosage: DOSAGE FORM: FOAM
     Route: 065
     Dates: start: 201704
  12. HERBALS\JUNIPERUS COMMUNIS WHOLE [Concomitant]
     Active Substance: HERBALS\JUNIPERUS COMMUNIS WHOLE
     Dosage: DOSAGE FORM: UNSPECIFIED, BATHROOMS WITH JUNIPER OIL ONCE A DAY FOR 20 MINUTES.
     Route: 065
  13. SIMVASTATIN [Concomitant]
     Active Substance: SIMVASTATIN
     Route: 065
  14. ACLIDINIUM BROMIDE [Concomitant]
     Active Substance: ACLIDINIUM BROMIDE
     Dosage: DOSAGE FORM: INHALATION, 1 INHALATION
     Route: 055
  15. LORATADINE [Concomitant]
     Active Substance: LORATADINE
     Dosage: ALSO RECEIVE 30 MG
     Route: 048
     Dates: start: 20170726
  16. BILASTINE [Concomitant]
     Active Substance: BILASTINE
     Dosage: ALSO RECEIVED 40 MG
     Route: 065
     Dates: start: 20170726, end: 20170726
  17. ACETAMINOPHEN [Concomitant]
     Active Substance: ACETAMINOPHEN
     Route: 065
  18. RETINOL\TOCOPHEROL [Concomitant]
     Active Substance: RETINOL\TOCOPHEROL
     Route: 048
     Dates: start: 201704, end: 20170726
  19. EUCERIN [Concomitant]
     Active Substance: ENSULIZOLE\EUCERIN\OCTINOXATE\OCTISALATE\TITANIUM DIOXIDE\ZINC OXIDE
     Route: 065
  20. BETAMETHASONE DIPROPIONATE\GENTAMICIN SULFATE [Concomitant]
     Active Substance: BETAMETHASONE DIPROPIONATE\GENTAMICIN SULFATE
     Route: 061
  21. PREDNISONE [Concomitant]
     Active Substance: PREDNISONE
     Route: 065
     Dates: end: 20170801
  22. ACITRETIN [Concomitant]
     Active Substance: ACITRETIN
     Dates: start: 20170728
  23. FUROSEMIDE [Concomitant]
     Active Substance: FUROSEMIDE
     Dosage: DOSAGE FORM: UNSPECIFIED, 1.5 (60 MG/ DAY)
     Route: 065
     Dates: start: 20170802, end: 20170802
  24. ENALAPRIL [Concomitant]
     Active Substance: ENALAPRIL
     Route: 065
  25. SALMETEROL [Concomitant]
     Active Substance: SALMETEROL
     Dosage: DOSAGE FORM: INHALATION, 1 INHALATION
     Route: 065
  26. ALLOPURINOL [Concomitant]
     Active Substance: ALLOPURINOL
     Route: 065
  27. AZITHROMYCIN [Concomitant]
     Active Substance: AZITHROMYCIN
     Dosage: DOSAGE FORM: UNSPECIFIED
     Route: 065
     Dates: end: 20170812
  28. METAMIZOLE MAGNESIUM [Concomitant]
     Active Substance: METAMIZOLE MAGNESIUM
     Indication: Product used for unknown indication
     Dosage: DOSAGE FORM: UNSPECIFIED, TOTAL 1200 MG ONCE A DAY
     Route: 042
  29. SPIRONOLACTONE [Concomitant]
     Active Substance: SPIRONOLACTONE
     Indication: Product used for unknown indication
     Dosage: DOSAGE FORM: UNSPECIFIED, TOTAL 1200 MG ONCE A DAY
     Route: 065
     Dates: end: 20170802
  30. METAMIZOLE SODIUM [Suspect]
     Active Substance: METAMIZOLE SODIUM
     Indication: Product used for unknown indication
     Dosage: UNSPECIFIED, TOTAL 1200 MG ONCE A DAY
     Route: 042
     Dates: start: 201708

REACTIONS (3)
  - Toxic epidermal necrolysis [Recovered/Resolved]
  - Oral candidiasis [Recovering/Resolving]
  - Fungal infection [Recovering/Resolving]

NARRATIVE: CASE EVENT DATE: 20170101
